FAERS Safety Report 9102242 (Version 3)
Quarter: 2013Q2

REPORT INFORMATION
  Report Type: Spontaneous
  Country: US (occurrence: US)
  Receive Date: 20130218
  Receipt Date: 20130606
  Transmission Date: 20140414
  Serious: No
  Sender: FDA-Public Use
  Company Number: US-BIOGENIDEC-2013BI012465

PATIENT
  Age: 63 Year
  Sex: Female

DRUGS (1)
  1. TYSABRI [Suspect]
     Indication: MULTIPLE SCLEROSIS
     Route: 042
     Dates: start: 20090825

REACTIONS (4)
  - Migraine [Recovered/Resolved]
  - Chondropathy [Not Recovered/Not Resolved]
  - Laryngitis [Recovered/Resolved]
  - Upper respiratory tract infection [Not Recovered/Not Resolved]
